FAERS Safety Report 17389591 (Version 1)
Quarter: 2020Q1

REPORT INFORMATION
  Report Type: Spontaneous
  Country: US (occurrence: US)
  Receive Date: 20200123
  Receipt Date: 20200123
  Transmission Date: 20200409
  Serious: Yes (Hospitalization)
  Sender: FDA-Public Use
  Company Number: None

PATIENT
  Age: 75 Year
  Sex: Male

DRUGS (12)
  1. HYDROCODONE POW [Concomitant]
  2. BENZONATE [Concomitant]
     Active Substance: BENZONATATE
  3. VITAMIN B12 [Concomitant]
     Active Substance: CYANOCOBALAMIN
  4. FAMOTIDINE. [Concomitant]
     Active Substance: FAMOTIDINE
  5. METFORMIN [Concomitant]
     Active Substance: METFORMIN HYDROCHLORIDE
  6. SPIRIVA [Concomitant]
     Active Substance: TIOTROPIUM BROMIDE MONOHYDRATE
  7. VITAMIN D3 [Concomitant]
     Active Substance: CHOLECALCIFEROL
  8. ROSUVASTATIN. [Concomitant]
     Active Substance: ROSUVASTATIN
  9. AMLODIPINE [Concomitant]
     Active Substance: AMLODIPINE BESYLATE
  10. PREDNISONE. [Concomitant]
     Active Substance: PREDNISONE
  11. ESBRIET [Suspect]
     Active Substance: PIRFENIDONE
     Indication: IDIOPATHIC PULMONARY FIBROSIS
     Route: 048
     Dates: start: 20170916
  12. INDAPAMIDE. [Concomitant]
     Active Substance: INDAPAMIDE

REACTIONS (2)
  - Urinary tract infection [None]
  - Sepsis [None]

NARRATIVE: CASE EVENT DATE: 202001
